FAERS Safety Report 4712132-9 (Version None)
Quarter: 2005Q3

REPORT INFORMATION
  Report Type: 
  Country: None (occurrence: None)
  Receive Date: 20050712
  Receipt Date: 20050706
  Transmission Date: 20060218
  Serious: Yes (Other)
  Sender: FDA-Public Use
  Company Number: US-JNJFOC-20050701072

PATIENT
  Sex: Female
  Weight: 15.42 kg

DRUGS (2)
  1. CHILDREN'S MOTRIN GRAPE [Suspect]
  2. CHILDREN'S MOTRIN GRAPE [Suspect]

REACTIONS (3)
  - FACIAL PALSY [None]
  - LYME DISEASE [None]
  - RASH [None]
